FAERS Safety Report 6359793-9 (Version None)
Quarter: 2009Q3

REPORT INFORMATION
  Report Type: 
  Country: None (occurrence: None)
  Receive Date: 20090917
  Receipt Date: 20090908
  Transmission Date: 20100115
  Serious: Yes (Death, Congenital Anomaly)
  Sender: FDA-Public Use
  Company Number: A0683106A

PATIENT
  Sex: Male

DRUGS (4)
  1. PAXIL [Suspect]
     Indication: DEPRESSION
     Dosage: 25MG PER DAY
     Dates: start: 20000101, end: 20000801
  2. AMITRIPTYLINE [Concomitant]
  3. AMBIEN [Concomitant]
  4. VITAMIN TAB [Concomitant]

REACTIONS (9)
  - COARCTATION OF THE AORTA [None]
  - DRUG EXPOSURE DURING PREGNANCY [None]
  - HYPOPLASTIC LEFT HEART SYNDROME [None]
  - INTRAVENTRICULAR HAEMORRHAGE [None]
  - METABOLIC ACIDOSIS [None]
  - MULTI-ORGAN FAILURE [None]
  - RESPIRATORY DISTRESS [None]
  - SEPSIS [None]
  - TRICUSPID VALVE INCOMPETENCE [None]
